FAERS Safety Report 25107797 (Version 4)
Quarter: 2025Q2

REPORT INFORMATION
  Report Type: Spontaneous
  Country: US (occurrence: US)
  Receive Date: 20250322
  Receipt Date: 20250519
  Transmission Date: 20250716
  Serious: No
  Sender: SANOFI AVENTIS
  Company Number: US-SA-2025SA081303

PATIENT
  Age: 87 Year
  Sex: Female
  Weight: 52.73 kg

DRUGS (1)
  1. DUPIXENT [Suspect]
     Active Substance: DUPILUMAB
     Indication: Dermatitis atopic
     Dosage: 300 MG, QOW
     Route: 058
     Dates: start: 202502

REACTIONS (8)
  - Skin exfoliation [Not Recovered/Not Resolved]
  - Nasopharyngitis [Unknown]
  - Cough [Unknown]
  - Decreased immune responsiveness [Unknown]
  - Injection site pain [Not Recovered/Not Resolved]
  - Pyrexia [Unknown]
  - Rhinorrhoea [Unknown]
  - Product storage error [Unknown]

NARRATIVE: CASE EVENT DATE: 20250201
